FAERS Safety Report 25275281 (Version 1)
Quarter: 2025Q2

REPORT INFORMATION
  Report Type: Spontaneous
  Country: GB (occurrence: GB)
  Receive Date: 20250506
  Receipt Date: 20250506
  Transmission Date: 20250717
  Serious: Yes (Life-Threatening, Other)
  Sender: ELI LILLY AND COMPANY
  Company Number: None

PATIENT
  Age: 77 Year
  Sex: Male
  Weight: 101 kg

DRUGS (8)
  1. MOUNJARO [Suspect]
     Active Substance: TIRZEPATIDE
     Indication: Type 2 diabetes mellitus
     Route: 065
     Dates: start: 20241205, end: 202412
  2. MOUNJARO [Suspect]
     Active Substance: TIRZEPATIDE
     Route: 065
     Dates: start: 20241230, end: 20250121
  3. ATORVASTATIN [Concomitant]
     Active Substance: ATORVASTATIN
     Indication: Transient ischaemic attack
     Dates: start: 20221205
  4. BISOPROLOL [Concomitant]
     Active Substance: BISOPROLOL
     Indication: Hypertension
     Dates: start: 20220324
  5. CITALOPRAM [Concomitant]
     Active Substance: CITALOPRAM
     Indication: Depression
     Dates: start: 20210902
  6. CLONAZEPAM [Concomitant]
     Active Substance: CLONAZEPAM
     Indication: Parkinsonism
     Dates: start: 20241003
  7. FINASTERIDE [Concomitant]
     Active Substance: FINASTERIDE
     Indication: Lower urinary tract symptoms
     Dates: start: 20210902
  8. BENSERAZIDE HYDROCHLORIDE\LEVODOPA [Concomitant]
     Active Substance: BENSERAZIDE HYDROCHLORIDE\LEVODOPA
     Indication: Parkinsonism
     Dates: start: 20240830

REACTIONS (3)
  - International normalised ratio increased [Recovered/Resolved]
  - Hypophagia [Unknown]
  - Nausea [Unknown]

NARRATIVE: CASE EVENT DATE: 20241230
